FAERS Safety Report 7249420-0 (Version None)
Quarter: 2011Q1

REPORT INFORMATION
  Report Type: 
  Country: None (occurrence: None)
  Receive Date: 20110128
  Receipt Date: 20101116
  Transmission Date: 20110831
  Serious: Yes (Hospitalization, Other)
  Sender: FDA-Public Use
  Company Number: US-BAYER-201037704NA

PATIENT
  Sex: Female
  Weight: 68 kg

DRUGS (7)
  1. OCELLA [Suspect]
     Indication: PREMENSTRUAL SYNDROME
     Dosage: UNK
     Dates: start: 20000101, end: 20100101
  2. YAZ [Suspect]
     Indication: ACNE
  3. DICYCLOMINE [Concomitant]
     Dosage: DAILY DOSE 20 MG
  4. YASMIN [Suspect]
     Indication: PREMENSTRUAL SYNDROME
     Dosage: UNK
     Dates: start: 20000101, end: 20100101
  5. YAZ [Suspect]
     Indication: PREMENSTRUAL SYNDROME
     Dosage: UNK
     Dates: start: 20000101, end: 20100101
  6. YASMIN [Suspect]
     Indication: ACNE
  7. OCELLA [Suspect]
     Indication: ACNE

REACTIONS (7)
  - ABDOMINAL PAIN UPPER [None]
  - HELICOBACTER GASTRITIS [None]
  - VOMITING [None]
  - DYSPEPSIA [None]
  - GALLBLADDER DISORDER [None]
  - PEPTIC ULCER [None]
  - GASTROOESOPHAGEAL REFLUX DISEASE [None]
